FAERS Safety Report 13553417 (Version 3)
Quarter: 2017Q2

REPORT INFORMATION
  Report Type: Spontaneous
  Country: HU (occurrence: HU)
  Receive Date: 20170517
  Receipt Date: 20170628
  Transmission Date: 20170830
  Serious: Yes (Life-Threatening, Hospitalization, Other)
  Sender: FDA-Public Use
  Company Number: HU-SUN PHARMACEUTICAL INDUSTRIES LTD-2017R1-140547

PATIENT
  Age: 27 Year
  Sex: Male

DRUGS (1)
  1. VALPROIC ACID. [Suspect]
     Active Substance: VALPROIC ACID
     Indication: PRODUCT USED FOR UNKNOWN INDICATION
     Dosage: UNK
     Route: 048

REACTIONS (15)
  - Overdose [Recovering/Resolving]
  - Atrial fibrillation [Recovering/Resolving]
  - Toxic encephalopathy [Recovering/Resolving]
  - Toxicity to various agents [Recovering/Resolving]
  - Leukopenia [Recovering/Resolving]
  - Coma [Recovering/Resolving]
  - Hypernatraemia [Recovering/Resolving]
  - Brain oedema [Recovering/Resolving]
  - Protein S increased [Recovering/Resolving]
  - Bone marrow failure [Recovering/Resolving]
  - Left ventricular dysfunction [Recovering/Resolving]
  - Hyperammonaemia [Recovering/Resolving]
  - Thrombocytopenia [Recovering/Resolving]
  - Sepsis [Recovering/Resolving]
  - Shock [Recovering/Resolving]
